FAERS Safety Report 7673893-2 (Version None)
Quarter: 2011Q3

REPORT INFORMATION
  Report Type: 
  Country: None (occurrence: None)
  Receive Date: 20110810
  Receipt Date: 20110215
  Transmission Date: 20111222
  Serious: No
  Sender: FDA-Public Use
  Company Number: US-GLAXOSMITHKLINE-A0914495A

PATIENT

DRUGS (2)
  1. ANTIBIOTIC [Suspect]
     Indication: INFECTION
  2. PAXIL [Suspect]
     Indication: PRODUCT USED FOR UNKNOWN INDICATION

REACTIONS (2)
  - THERAPEUTIC RESPONSE DECREASED [None]
  - DRUG INTERACTION [None]
